FAERS Safety Report 10541113 (Version 1)
Quarter: 2014Q4

REPORT INFORMATION
  Report Type: Spontaneous
  Country: US (occurrence: None)
  Receive Date: 20141010
  Receipt Date: 20141010
  Transmission Date: 20150529
  Serious: Yes (Other)
  Sender: FDA-Public Use
  Company Number: 163-POMAL-14060732

PATIENT
  Age: 74 Year
  Sex: Male
  Weight: 74.39 kg

DRUGS (12)
  1. VITAMIN B COMPLEX (B-KOMPLEX (LECIVA^) [Concomitant]
  2. ACYCLOVIR (ACICLOVIR) [Concomitant]
  3. POMALYST [Suspect]
     Active Substance: POMALIDOMIDE
     Indication: PLASMA CELL MYELOMA
     Route: 048
     Dates: start: 20130711
  4. LORTAB (VICODIN) [Concomitant]
  5. DEXAMETHASONE (DEXAMETHASONE) [Concomitant]
     Active Substance: DEXAMETHASONE
  6. NEURONTIN [Concomitant]
     Active Substance: GABAPENTIN
  7. TERAZOSIN (TERAZOSIN) [Concomitant]
  8. ASPIRIN EC (ACETYLSALICYLIC ACID) [Concomitant]
  9. OMEPRAZOLE (OMEPRAZOLE) [Concomitant]
     Active Substance: OMEPRAZOLE
  10. MULTIVITAMINS (MULTIVITAMINS) [Concomitant]
     Active Substance: VITAMINS
  11. CALCIUM 600 D (LECOVIT CA) [Concomitant]
  12. BACTRIM DS (BACTRIM) [Concomitant]

REACTIONS (2)
  - Body height decreased [None]
  - Pneumonia [None]
